FAERS Safety Report 10309973 (Version 1)
Quarter: 2014Q3

REPORT INFORMATION
  Report Type: Spontaneous
  Country: US (occurrence: None)
  Receive Date: 20140715
  Receipt Date: 20140715
  Transmission Date: 20150326
  Serious: Yes (Life-Threatening, Other)
  Sender: FDA-Public Use
  Company Number: None

PATIENT
  Age: 54 Year
  Sex: Male
  Weight: 97.98 kg

DRUGS (1)
  1. NIACIN. [Suspect]
     Active Substance: NIACIN
     Indication: BLOOD CHOLESTEROL ABNORMAL
     Dosage: 5X500MG  THREE TIMES DAILY TAKEN BY MOUTH
     Route: 048
     Dates: start: 20140301, end: 20140703

REACTIONS (13)
  - Product physical issue [None]
  - Product quality issue [None]
  - Gastric dilatation [None]
  - Product colour issue [None]
  - Product solubility abnormal [None]
  - Dyspepsia [None]
  - Initial insomnia [None]
  - Product substitution issue [None]
  - Foreign body [None]
  - Gastrointestinal pain [None]
  - Product taste abnormal [None]
  - Medication residue present [None]
  - Gastrointestinal hypomotility [None]

NARRATIVE: CASE EVENT DATE: 20140704
